FAERS Safety Report 5845545-2 (Version None)
Quarter: 2008Q3

REPORT INFORMATION
  Report Type: 
  Country: None (occurrence: None)
  Receive Date: 20080814
  Receipt Date: 20080811
  Transmission Date: 20090109
  Serious: Yes (Hospitalization, Disabling, Other)
  Sender: FDA-Public Use
  Company Number: DE-WYE-H05479508

PATIENT
  Sex: Male
  Weight: 72 kg

DRUGS (5)
  1. CYCLOSPORINE [Suspect]
     Indication: PROPHYLAXIS AGAINST TRANSPLANT REJECTION
     Route: 048
     Dates: start: 20080720
  2. BENZBROMARONE [Concomitant]
     Indication: HYPERURICAEMIA
  3. PREDNISONE TAB [Concomitant]
     Indication: PROPHYLAXIS AGAINST TRANSPLANT REJECTION
     Dosage: ^2.5 1-0-0^
  4. FRAXIPARIN [Concomitant]
     Indication: THROMBOSIS PROPHYLAXIS
     Dosage: 0.3 (UNITS/FREQUENCY UNSPECIFIED)
     Dates: start: 20080807
  5. URSODEOXYCHOLATE SODIUM [Concomitant]
     Indication: BILE DUCT STENOSIS
     Dosage: UNSPECIFIED

REACTIONS (1)
  - METASTASES TO LUNG [None]
